FAERS Safety Report 23863983 (Version 3)
Quarter: 2024Q3

REPORT INFORMATION
  Report Type: Report from Study
  Country: US (occurrence: US)
  Receive Date: 20240516
  Receipt Date: 20240722
  Transmission Date: 20241017
  Serious: Yes (Death, Life-Threatening, Other)
  Sender: JOHNSON AND JOHNSON
  Company Number: US-JNJFOC-20240537614

PATIENT
  Age: 46 Year
  Sex: Female
  Weight: 49.486 kg

DRUGS (10)
  1. SPRAVATO [Suspect]
     Active Substance: ESKETAMINE
     Indication: Depression
     Dosage: ^56 MG, 1 TOTAL DOSE^
     Dates: start: 20201002, end: 20201002
  2. SPRAVATO [Suspect]
     Active Substance: ESKETAMINE
     Indication: Major depression
     Dosage: ^84 MG, 92 TOTAL DOSES^
     Dates: start: 20201005, end: 20221027
  3. SPRAVATO [Suspect]
     Active Substance: ESKETAMINE
     Dosage: ^56 MG, 1 TOTAL DOSE^
     Dates: start: 20221101, end: 20221101
  4. SPRAVATO [Suspect]
     Active Substance: ESKETAMINE
     Dosage: ^84 MG, 26 TOTAL DOSES^
     Dates: start: 20221102, end: 20230307
  5. SPRAVATO [Suspect]
     Active Substance: ESKETAMINE
     Dosage: ^56 MG, 1 TOTAL DOSE^
     Dates: start: 20230313, end: 20230313
  6. SPRAVATO [Suspect]
     Active Substance: ESKETAMINE
     Dosage: ^84 MG, 17 TOTAL DOSES^, ALSO REPORTED AS 13-NOV-2023 (LAST DOSE)
     Dates: start: 20230315, end: 20231114
  7. BUPROPION [Concomitant]
     Active Substance: BUPROPION
     Dosage: BUPROPION XL
  8. DOCUSATE SODIUM [Concomitant]
     Active Substance: DOCUSATE SODIUM
  9. ESCITALOPRAM [Concomitant]
     Active Substance: ESCITALOPRAM OXALATE
     Indication: Major depression
     Route: 048
  10. WELLBUTRIN XL [Concomitant]
     Active Substance: BUPROPION HYDROCHLORIDE
     Indication: Major depression
     Route: 048

REACTIONS (10)
  - Death [Fatal]
  - Suicidal ideation [Unknown]
  - Decreased interest [Unknown]
  - Sleep disorder [Unknown]
  - Appetite disorder [Unknown]
  - Feeling guilty [Unknown]
  - Feeling of despair [Unknown]
  - Asthenia [Unknown]
  - Depressed mood [Unknown]
  - Product dose omission issue [Unknown]

NARRATIVE: CASE EVENT DATE: 20231101
